FAERS Safety Report 12415419 (Version 1)
Quarter: 2016Q2

REPORT INFORMATION
  Report Type: Report from Study
  Country: CO (occurrence: CO)
  Receive Date: 20160530
  Receipt Date: 20160530
  Transmission Date: 20160815
  Serious: Yes (Other)
  Sender: FDA-Public Use
  Company Number: CO-BRISTOL-MYERS SQUIBB COMPANY-BMS-2016-040633

PATIENT
  Age: 58 Year
  Sex: Female
  Weight: 57 kg

DRUGS (2)
  1. ABATACEPT [Suspect]
     Active Substance: ABATACEPT
     Indication: RHEUMATOID ARTHRITIS
     Dosage: 125 MG/ML, QWK
     Route: 058
     Dates: start: 20160301
  2. ABATACEPT [Suspect]
     Active Substance: ABATACEPT
     Dosage: 125 MG/ML, QWK
     Route: 058
     Dates: start: 20160308

REACTIONS (2)
  - Rheumatoid arthritis [Unknown]
  - Generalised oedema [Unknown]

NARRATIVE: CASE EVENT DATE: 20160311
